FAERS Safety Report 9978623 (Version 1)
Quarter: 2014Q1

REPORT INFORMATION
  Report Type: Report from Study
  Country: US (occurrence: US)
  Receive Date: 20140306
  Receipt Date: 20140306
  Transmission Date: 20141002
  Serious: No
  Sender: FDA-Public Use
  Company Number: US-ABBVIE-13P-163-1173913-00

PATIENT
  Age: 45 Year
  Sex: Female

DRUGS (2)
  1. HUMIRA [Suspect]
     Indication: CROHN^S DISEASE
     Dosage: DAY ONE
     Dates: start: 20131120, end: 20131120
  2. HUMIRA [Suspect]

REACTIONS (9)
  - Feeling abnormal [Recovering/Resolving]
  - Cardiac flutter [Recovering/Resolving]
  - Sluggishness [Recovering/Resolving]
  - Disturbance in attention [Recovering/Resolving]
  - Pain [Recovering/Resolving]
  - Fatigue [Recovering/Resolving]
  - Cough [Recovering/Resolving]
  - Chest discomfort [Recovering/Resolving]
  - Influenza like illness [Recovering/Resolving]
